FAERS Safety Report 5393060-5 (Version None)
Quarter: 2007Q3

REPORT INFORMATION
  Report Type: 
  Country: None (occurrence: None)
  Receive Date: 20070719
  Receipt Date: 20070629
  Transmission Date: 20080115
  Serious: Yes (Life-Threatening)
  Sender: FDA-Public Use
  Company Number: 2007326558

PATIENT
  Age: 35 Year
  Sex: Male
  Weight: 70 kg

DRUGS (3)
  1. NICORETTE [Suspect]
     Indication: SMOKING CESSATION THERAPY
     Dosage: 42 MG (21 MG), TRANSDERMAL
     Route: 062
     Dates: start: 20070601
  2. TRAMADOL HCL [Concomitant]
  3. DRUG, UNSPECIFIED (DRUG, UNSPECIFIED) [Concomitant]

REACTIONS (5)
  - ACUTE RESPIRATORY FAILURE [None]
  - BLOOD GASES ABNORMAL [None]
  - LUNG INFECTION [None]
  - PERICARDITIS [None]
  - STREPTOCOCCAL INFECTION [None]
